FAERS Safety Report 21633147 (Version 5)
Quarter: 2023Q2

REPORT INFORMATION
  Report Type: Spontaneous
  Country: US (occurrence: US)
  Receive Date: 20221123
  Receipt Date: 20230502
  Transmission Date: 20230722
  Serious: Yes (Other)
  Sender: FDA-Public Use
  Company Number: US-PFIZER INC-PV202200107525

PATIENT
  Age: 52 Year
  Sex: Female

DRUGS (1)
  1. IBRANCE [Suspect]
     Active Substance: PALBOCICLIB
     Indication: Breast cancer female
     Dosage: 125 MG, CYCLIC (EVERY DAY DAYS 1- 21 DAYS 7 DAYS OFF)

REACTIONS (7)
  - Pneumonia [Unknown]
  - Brain fog [Unknown]
  - Memory impairment [Unknown]
  - Bronchitis [Unknown]
  - Respiratory syncytial virus infection [Unknown]
  - Pain in extremity [Unknown]
  - Hypoacusis [Unknown]
